FAERS Safety Report 14782217 (Version 1)
Quarter: 2018Q2

REPORT INFORMATION
  Report Type: Spontaneous
  Country: GB (occurrence: GB)
  Receive Date: 20180420
  Receipt Date: 20180420
  Transmission Date: 20180711
  Serious: Yes (Life-Threatening, Hospitalization, Other)
  Sender: FDA-Public Use
  Company Number: GB-ORION CORPORATION ORION PHARMA-18_00003435

PATIENT
  Age: 87 Year
  Sex: Male

DRUGS (9)
  1. ACETYLSALICYLIC ACID [Concomitant]
     Active Substance: ASPIRIN
     Route: 065
  2. FUROSEMIDE. [Concomitant]
     Active Substance: FUROSEMIDE
     Dosage: MORNING (USUALLY)
     Route: 065
  3. OMEPRAZOLE. [Concomitant]
     Active Substance: OMEPRAZOLE
     Route: 065
  4. GLYCERYL TRINITRATE [Concomitant]
     Active Substance: NITROGLYCERIN
  5. SIMVASTATIN. [Concomitant]
     Active Substance: SIMVASTATIN
     Dosage: NIGHT
     Route: 065
  6. CARVEDILOL. [Concomitant]
     Active Substance: CARVEDILOL
     Route: 065
  7. RAMIPRIL. [Concomitant]
     Active Substance: RAMIPRIL
     Route: 065
  8. METHOTREXATE (TRADE NAME UNKNOWN) [Suspect]
     Active Substance: METHOTREXATE
     Route: 048
     Dates: start: 20180303, end: 20180315
  9. ISOSORBIDE MONONITRATE. [Concomitant]
     Active Substance: ISOSORBIDE MONONITRATE
     Route: 065

REACTIONS (6)
  - Oropharyngeal pain [Recovered/Resolved]
  - Drug dispensing error [Unknown]
  - Product use issue [Unknown]
  - Thrombocytopenia [Recovered/Resolved]
  - Mouth haemorrhage [Recovered/Resolved]
  - Haemoptysis [Unknown]
